FAERS Safety Report 6941943-4 (Version None)
Quarter: 2010Q3

REPORT INFORMATION
  Report Type: 
  Country: None (occurrence: None)
  Receive Date: 20100826
  Receipt Date: 20100816
  Transmission Date: 20110219
  Serious: Yes (Other)
  Sender: FDA-Public Use
  Company Number: US-PFIZER INC-2010103603

PATIENT
  Sex: Female
  Weight: 63 kg

DRUGS (4)
  1. ESTRING [Suspect]
     Indication: VULVOVAGINAL DRYNESS
     Dosage: 2 MG, UNK
     Route: 067
     Dates: end: 20100801
  2. PROZAC [Concomitant]
     Indication: DEPRESSION
     Dosage: UNK
  3. LORAZEPAM [Concomitant]
     Indication: SLEEP DISORDER
     Dosage: UNK
  4. PRAZOSIN [Concomitant]
     Dosage: UNK
     Dates: end: 20100101

REACTIONS (2)
  - COELIAC DISEASE [None]
  - VULVOVAGINAL MYCOTIC INFECTION [None]
